FAERS Safety Report 12501399 (Version 2)
Quarter: 2016Q2

REPORT INFORMATION
  Report Type: Report from Study
  Country: CA (occurrence: CA)
  Receive Date: 20160627
  Receipt Date: 20160628
  Transmission Date: 20160815
  Serious: Yes (Other)
  Sender: FDA-Public Use
  Company Number: CA-BAYER-2015-117504

PATIENT
  Age: 41 Year
  Sex: Female

DRUGS (8)
  1. CYMBALTA [Concomitant]
     Active Substance: DULOXETINE HYDROCHLORIDE
  2. DOCUSATE SODIUM. [Concomitant]
     Active Substance: DOCUSATE SODIUM
  3. BETASERON [Suspect]
     Active Substance: INTERFERON BETA-1B
     Indication: MULTIPLE SCLEROSIS
     Dosage: 0.25 MG, UNK
     Dates: start: 20100101
  4. LYRICA [Concomitant]
     Active Substance: PREGABALIN
  5. ATIVAN [Concomitant]
     Active Substance: LORAZEPAM
  6. BACLOFEN. [Concomitant]
     Active Substance: BACLOFEN
  7. VITAMIN D [Concomitant]
     Active Substance: CHOLECALCIFEROL
  8. ULIPRISTAL ACETATE [Concomitant]
     Active Substance: ULIPRISTAL ACETATE

REACTIONS (10)
  - Endometriosis [Recovered/Resolved]
  - Pain [Not Recovered/Not Resolved]
  - Fatigue [Not Recovered/Not Resolved]
  - Uterine leiomyoma [Recovered/Resolved]
  - Surgery [Unknown]
  - Injection site pain [None]
  - Injection site pain [None]
  - Injection site pain [Unknown]
  - Insomnia [Not Recovered/Not Resolved]
  - Fibromyalgia [Not Recovered/Not Resolved]

NARRATIVE: CASE EVENT DATE: 20100101
